FAERS Safety Report 20632265 (Version 1)
Quarter: 2022Q1

REPORT INFORMATION
  Report Type: Spontaneous
  Country: CA (occurrence: CA)
  Receive Date: 20220324
  Receipt Date: 20220324
  Transmission Date: 20220423
  Serious: Yes (Hospitalization, Other)
  Sender: FDA-Public Use
  Company Number: CA-SAMSUNG BIOEPIS-SB-2021-21208

PATIENT
  Age: 16 Year
  Sex: Male
  Weight: 40 kg

DRUGS (3)
  1. INFLIXIMAB [Suspect]
     Active Substance: INFLIXIMAB
     Indication: Crohn^s disease
     Route: 042
  2. GUANFACINE HYDROCHLORIDE [Concomitant]
     Active Substance: GUANFACINE HYDROCHLORIDE
     Indication: Product used for unknown indication
     Dosage: UNKNOWN
     Route: 065
  3. PREDNISONE [Concomitant]
     Active Substance: PREDNISONE
     Indication: Product used for unknown indication
     Dosage: UNKNOWN
     Route: 065

REACTIONS (8)
  - Crohn^s disease [Unknown]
  - Nasopharyngitis [Unknown]
  - Diarrhoea haemorrhagic [Unknown]
  - Faecal calprotectin increased [Unknown]
  - Oral herpes [Unknown]
  - Pyrexia [Unknown]
  - Drug ineffective [Unknown]
  - Off label use [Unknown]
